FAERS Safety Report 9397562 (Version 3)
Quarter: 2013Q3

REPORT INFORMATION
  Report Type: Spontaneous
  Country: DE (occurrence: DE)
  Receive Date: 20130712
  Receipt Date: 20130815
  Transmission Date: 20140515
  Serious: Yes (Other)
  Sender: FDA-Public Use
  Company Number: DE-PFIZER INC-2013199677

PATIENT
  Age: 77 Year
  Sex: Female

DRUGS (1)
  1. BOSUTINIB [Suspect]
     Indication: CHRONIC MYELOID LEUKAEMIA
     Dosage: UNK
     Dates: start: 201101, end: 201102

REACTIONS (8)
  - Atrial fibrillation [Unknown]
  - Acute coronary syndrome [Unknown]
  - Acute myocardial infarction [Unknown]
  - Renal failure chronic [Unknown]
  - Disease progression [Unknown]
  - Chronic myeloid leukaemia [Unknown]
  - Leukocytosis [Unknown]
  - Thrombocytosis [Unknown]
